FAERS Safety Report 17621499 (Version 1)
Quarter: 2020Q2

REPORT INFORMATION
  Report Type: Spontaneous
  Country: DE (occurrence: DE)
  Receive Date: 20200403
  Receipt Date: 20200403
  Transmission Date: 20200713
  Serious: Yes (Hospitalization, Other)
  Sender: FDA-Public Use
  Company Number: DE-TORRENT-00017117

PATIENT
  Age: 6 Year
  Sex: Female

DRUGS (13)
  1. TOPIRAMATE. [Suspect]
     Active Substance: TOPIRAMATE
     Indication: PARTIAL SEIZURES
     Dosage: UNKNOWN
  2. CARBAMAZEPINE. [Suspect]
     Active Substance: CARBAMAZEPINE
     Indication: PARTIAL SEIZURES
     Dosage: UNKNOWN
  3. LAMOTRIGINE. [Suspect]
     Active Substance: LAMOTRIGINE
     Indication: TUBEROUS SCLEROSIS COMPLEX
     Dosage: UNKNOWN
     Route: 065
  4. CLOBAZAM. [Interacting]
     Active Substance: CLOBAZAM
     Indication: TUBEROUS SCLEROSIS COMPLEX
     Dosage: 2.5 MG, BID
     Route: 065
     Dates: start: 2018
  5. CANNABIDIOL [Interacting]
     Active Substance: CANNABIDIOL
     Indication: EPILEPSY
     Dosage: 500 MG, QD (20.4 MG/KG/DAY), SOLUTION
     Route: 065
  6. PROPRANOLOL [Concomitant]
     Active Substance: PROPRANOLOL HYDROCHLORIDE
     Indication: TUBEROUS SCLEROSIS COMPLEX
     Dosage: UNK
     Route: 065
  7. LACOSAMIDE. [Suspect]
     Active Substance: LACOSAMIDE
     Indication: TUBEROUS SCLEROSIS COMPLEX
     Dosage: UNKNOWN
     Route: 065
  8. SULTHIAME [Suspect]
     Active Substance: SULTHIAME
     Indication: PARTIAL SEIZURES
     Dosage: UNKNOWN
  9. ZONISAMIDE. [Suspect]
     Active Substance: ZONISAMIDE
     Indication: PARTIAL SEIZURES
     Dosage: UNKNOWN
  10. VALPROATE [Suspect]
     Active Substance: VALPROIC ACID
     Indication: PARTIAL SEIZURES
     Dosage: UNKNOWN
  11. VIGABATRIN. [Suspect]
     Active Substance: VIGABATRIN
     Indication: PARTIAL SEIZURES
     Dosage: UNKNOWN
  12. EVEROLIMUS. [Interacting]
     Active Substance: EVEROLIMUS
     Indication: EPILEPSY
     Dosage: 0.13 MG/KG, QD
     Route: 065
  13. OXCARBAZEPINE. [Suspect]
     Active Substance: OXCARBAZEPINE
     Indication: PARTIAL SEIZURES
     Dosage: UNKNOWN

REACTIONS (7)
  - Off label use [Unknown]
  - Therapeutic product effective for unapproved indication [Unknown]
  - Tonic convulsion [Unknown]
  - Epilepsy [Unknown]
  - Drug ineffective [Unknown]
  - Drug interaction [Unknown]
  - Drug level increased [Not Recovered/Not Resolved]

NARRATIVE: CASE EVENT DATE: 20181027
